FAERS Safety Report 5634930-X (Version None)
Quarter: 2008Q1

REPORT INFORMATION
  Report Type: 
  Country: None (occurrence: None)
  Receive Date: 20080131
  Receipt Date: 20071127
  Transmission Date: 20080703
  Serious: No
  Sender: FDA-Public Use
  Company Number: 2007-US-000277

PATIENT
  Age: 14 Year
  Sex: Female
  Weight: 37.2 kg

DRUGS (6)
  1. INCRELEX [Suspect]
     Indication: GROWTH HORMONE DEFICIENCY
     Dosage: 14, 28  UT, BID, SUBCUTANEOUS
     Route: 058
     Dates: start: 20071108, end: 20071118
  2. INCRELEX [Suspect]
     Indication: HORMONE REPLACEMENT THERAPY
     Dosage: 14, 28  UT, BID, SUBCUTANEOUS
     Route: 058
     Dates: start: 20071108, end: 20071118
  3. INCRELEX [Suspect]
     Indication: GROWTH HORMONE DEFICIENCY
     Dosage: 14, 28  UT, BID, SUBCUTANEOUS
     Route: 058
     Dates: start: 19971119
  4. INCRELEX [Suspect]
     Indication: HORMONE REPLACEMENT THERAPY
     Dosage: 14, 28  UT, BID, SUBCUTANEOUS
     Route: 058
     Dates: start: 19971119
  5. PRILOSEC [Concomitant]
  6. PREMARIN [Concomitant]

REACTIONS (1)
  - INJECTION SITE IRRITATION [None]
